FAERS Safety Report 16571856 (Version 1)
Quarter: 2019Q3

REPORT INFORMATION
  Report Type: Spontaneous
  Country: CZ (occurrence: CZ)
  Receive Date: 20190715
  Receipt Date: 20190715
  Transmission Date: 20191004
  Serious: Yes (Hospitalization, Other)
  Sender: FDA-Public Use
  Company Number: CZ-SA-2019SA188038

PATIENT
  Age: 28 Year
  Sex: Female

DRUGS (1)
  1. ALEMTUZUMAB [Suspect]
     Active Substance: ALEMTUZUMAB
     Indication: RELAPSING-REMITTING MULTIPLE SCLEROSIS
     Dosage: 5 INFUSION OF A ALEMTUZUMAB COURSE
     Route: 041

REACTIONS (7)
  - Headache [Recovering/Resolving]
  - Listeriosis [Recovering/Resolving]
  - Meningism [Recovering/Resolving]
  - Vomiting [Recovering/Resolving]
  - Asthenia [Recovering/Resolving]
  - Meningitis listeria [Recovering/Resolving]
  - Pyrexia [Recovering/Resolving]
